FAERS Safety Report 17859565 (Version 1)
Quarter: 2020Q2

REPORT INFORMATION
  Report Type: Spontaneous
  Country: GB (occurrence: GB)
  Receive Date: 20200604
  Receipt Date: 20200604
  Transmission Date: 20200714
  Serious: Yes (Life-Threatening, Other)
  Sender: FDA-Public Use
  Company Number: GB-TEVA-2020-GB-1243403

PATIENT
  Age: 84 Year
  Sex: Male

DRUGS (7)
  1. ACCORD HEALTHCARE SIMVASTATIN [Concomitant]
     Active Substance: SIMVASTATIN
  2. WARFARIN [Suspect]
     Active Substance: WARFARIN
     Indication: ATRIAL FIBRILLATION
     Dosage: 2 MG
     Route: 048
  3. THYROXINE [Concomitant]
     Active Substance: LEVOTHYROXINE
  4. COLECALCIFEROL [Concomitant]
     Active Substance: CHOLECALCIFEROL
  5. DIGOXIN. [Concomitant]
     Active Substance: DIGOXIN
  6. ACCORD HEALTHCARE FINASTERIDE [Concomitant]
     Active Substance: FINASTERIDE
  7. FOLIC ACID. [Concomitant]
     Active Substance: FOLIC ACID

REACTIONS (2)
  - International normalised ratio increased [Recovered/Resolved]
  - Urinary tract infection [Unknown]
